FAERS Safety Report 9518934 (Version 1)
Quarter: 2013Q3

REPORT INFORMATION
  Report Type: Spontaneous
  Country: US (occurrence: None)
  Receive Date: 20130910
  Receipt Date: 20130910
  Transmission Date: 20140515
  Serious: Yes (Hospitalization)
  Sender: FDA-Public Use
  Company Number: None

PATIENT
  Age: 77 Year
  Sex: Male
  Weight: 79.9 kg

DRUGS (2)
  1. BORTEZOMIB [Suspect]
     Indication: DIFFUSE LARGE B-CELL LYMPHOMA
     Route: 042
     Dates: start: 20130321, end: 20130626
  2. TEMSIROLIMUS [Suspect]
     Route: 042
     Dates: start: 20130312, end: 20130626

REACTIONS (1)
  - Hospitalisation [None]
